FAERS Safety Report 19406466 (Version 7)
Quarter: 2021Q4

REPORT INFORMATION
  Report Type: Report from Study
  Country: US (occurrence: US)
  Receive Date: 20210611
  Receipt Date: 20211018
  Transmission Date: 20220303
  Serious: No
  Sender: FDA-Public Use
  Company Number: NVSC2021US125640

PATIENT
  Sex: Male

DRUGS (2)
  1. MAYZENT [Suspect]
     Active Substance: SIPONIMOD
     Indication: Multiple sclerosis
     Dosage: 2 MG, QD
     Route: 048
  2. MAYZENT [Suspect]
     Active Substance: SIPONIMOD
     Dosage: UNK
     Route: 048

REACTIONS (3)
  - Lethargy [Unknown]
  - Visual impairment [Unknown]
  - Product dose omission in error [Unknown]
